FAERS Safety Report 13559304 (Version 2)
Quarter: 2017Q2

REPORT INFORMATION
  Report Type: Report from Study
  Country: CA (occurrence: CA)
  Receive Date: 20170518
  Receipt Date: 20170602
  Transmission Date: 20170830
  Serious: Yes (Hospitalization)
  Sender: FDA-Public Use
  Company Number: CA-AMGEN-CANSL2017074987

PATIENT
  Sex: Male

DRUGS (2)
  1. PREDNISONE. [Concomitant]
     Active Substance: PREDNISONE
     Indication: PLATELET COUNT
     Dosage: UNK
     Dates: start: 20170506
  2. NPLATE [Suspect]
     Active Substance: ROMIPLOSTIM
     Indication: PRODUCT USED FOR UNKNOWN INDICATION
     Dosage: 250 MUG/0.5ML
     Route: 065
     Dates: start: 20151221

REACTIONS (4)
  - Haemoglobin abnormal [Unknown]
  - Palpitations [Unknown]
  - Dyspnoea [Unknown]
  - Neutrophil count abnormal [Unknown]
